FAERS Safety Report 8250127-1 (Version None)
Quarter: 2012Q1

REPORT INFORMATION
  Report Type: 
  Country: None (occurrence: None)
  Receive Date: 20120328
  Receipt Date: 20120319
  Transmission Date: 20120608
  Serious: Yes (Hospitalization)
  Sender: FDA-Public Use
  Company Number: 2012SP015386

PATIENT
  Age: 12 Year
  Sex: Female
  Weight: 43 kg

DRUGS (2)
  1. PROPRANOLOL [Suspect]
     Indication: PRODUCT USED FOR UNKNOWN INDICATION
     Dosage: 40 MG;ONCE;PO
     Route: 048
     Dates: start: 20110120, end: 20110120
  2. DESLORATADINE [Suspect]
     Indication: PRODUCT USED FOR UNKNOWN INDICATION
     Dosage: 5 MG;UNK;PO
     Route: 048

REACTIONS (5)
  - TACHYCARDIA [None]
  - SELF-MEDICATION [None]
  - WRONG DRUG ADMINISTERED [None]
  - MALAISE [None]
  - MEDICATION ERROR [None]
